FAERS Safety Report 21749038 (Version 2)
Quarter: 2022Q4

REPORT INFORMATION
  Report Type: Report from Study
  Country: UA (occurrence: UA)
  Receive Date: 20221219
  Receipt Date: 20221222
  Transmission Date: 20230113
  Serious: Yes (Death)
  Sender: FDA-Public Use
  Company Number: UA-JNJFOC-20221233754

PATIENT
  Age: 41 Year
  Sex: Female
  Weight: 67.5 kg

DRUGS (2)
  1. PONESIMOD [Suspect]
     Active Substance: PONESIMOD
     Indication: Relapsing multiple sclerosis
     Dosage: MED KIT: 177596
     Route: 048
     Dates: start: 20180219, end: 20221209
  2. LEVONORGESTREL [Concomitant]
     Active Substance: LEVONORGESTREL
     Indication: Contraception
     Dates: start: 20150909

REACTIONS (2)
  - Venous thrombosis limb [Fatal]
  - Pulmonary artery thrombosis [Fatal]

NARRATIVE: CASE EVENT DATE: 20221210
